FAERS Safety Report 8702495 (Version 4)
Quarter: 2013Q1

REPORT INFORMATION
  Report Type: Spontaneous
  Country: GB (occurrence: GB)
  Receive Date: 20120803
  Receipt Date: 20130108
  Transmission Date: 20140127
  Serious: Yes (Death)
  Sender: FDA-Public Use
  Company Number: GB-ABBOTT-12P-167-0963163-00

PATIENT
  Age: 28 Year
  Sex: Female
  Weight: 95 kg

DRUGS (5)
  1. HUMIRA [Suspect]
     Indication: PSORIASIS
     Dosage: HAD 6 INJECTIONS
     Route: 058
     Dates: start: 20120404, end: 20120520
  2. METHOTREXATE [Concomitant]
     Indication: ARTHRITIS
     Route: 048
     Dates: start: 20090915
  3. OMEPRAZOLE [Concomitant]
     Indication: DYSPEPSIA
     Dates: start: 20091020, end: 20120404
  4. FOLIC ACID [Concomitant]
     Indication: PRODUCT USED FOR UNKNOWN INDICATION
     Dates: start: 20091015
  5. NAPROXEN [Concomitant]
     Indication: ARTHRITIS
     Dates: start: 20091015

REACTIONS (3)
  - Glioblastoma [Fatal]
  - Hydrocephalus [Fatal]
  - Headache [Unknown]
